FAERS Safety Report 9125213 (Version 3)
Quarter: 2013Q2

REPORT INFORMATION
  Report Type: Report from Study
  Country: GR (occurrence: GR)
  Receive Date: 20130227
  Receipt Date: 20130621
  Transmission Date: 20140414
  Serious: Yes (Death, Life-Threatening, Hospitalization)
  Sender: FDA-Public Use
  Company Number: GR-BAXTER-2013BAX006533

PATIENT
  Age: 80 Year
  Sex: Male
  Weight: 58 kg

DRUGS (18)
  1. ENDOXAN 200 MG - POWDER FOR SOLUTION FOR INJECTION [Suspect]
     Indication: DIFFUSE LARGE B-CELL LYMPHOMA
     Route: 065
     Dates: start: 20121224
  2. DOXORUBICIN [Suspect]
     Indication: DIFFUSE LARGE B-CELL LYMPHOMA
     Route: 065
     Dates: start: 20121224
  3. VINCRISTINE SULFATE [Suspect]
     Indication: DIFFUSE LARGE B-CELL LYMPHOMA
     Route: 065
     Dates: start: 20121224
  4. PREDNISONE [Suspect]
     Indication: DIFFUSE LARGE B-CELL LYMPHOMA
     Route: 065
     Dates: start: 20121224
  5. RITUXIMAB [Suspect]
     Indication: DIFFUSE LARGE B-CELL LYMPHOMA
     Route: 042
     Dates: start: 20121224
  6. RITUXIMAB [Suspect]
     Route: 058
     Dates: start: 20130114
  7. FILGRASTIM [Concomitant]
     Indication: PRODUCT USED FOR UNKNOWN INDICATION
     Route: 065
     Dates: end: 20120127
  8. THIAMAZOLE [Concomitant]
     Indication: CARDIAC FAILURE CHRONIC
     Route: 048
     Dates: start: 20121205
  9. FUROSEMIDE [Concomitant]
     Indication: CARDIAC FAILURE CHRONIC
     Route: 048
     Dates: start: 20121205
  10. CARVEDILOL [Concomitant]
     Indication: PRODUCT USED FOR UNKNOWN INDICATION
     Route: 048
     Dates: start: 20121205
  11. ENALAPRIL MALEATE [Concomitant]
     Indication: CARDIAC FAILURE CHRONIC
     Route: 048
     Dates: start: 20121205
  12. NITROGLYCERIN [Concomitant]
     Indication: CARDIAC FAILURE CHRONIC
     Route: 062
     Dates: start: 20121205
  13. ASPIRIN [Concomitant]
     Indication: PRODUCT USED FOR UNKNOWN INDICATION
     Route: 048
     Dates: start: 20121202
  14. METHYLPREDNISOLONE [Concomitant]
     Indication: PRODUCT USED FOR UNKNOWN INDICATION
     Route: 048
     Dates: start: 20121218, end: 20121221
  15. METHYLPREDNISOLONE [Concomitant]
     Route: 042
     Dates: start: 20121224, end: 20121224
  16. DIMETINDENE MALEATE [Concomitant]
     Indication: PRODUCT USED FOR UNKNOWN INDICATION
     Route: 065
     Dates: start: 20121224, end: 20121224
  17. APOMORPHINE HYDROCHLORIDE [Concomitant]
     Indication: PRODUCT USED FOR UNKNOWN INDICATION
     Route: 042
     Dates: start: 20121224, end: 20121224
  18. ONDANSETRON [Concomitant]
     Indication: PRODUCT USED FOR UNKNOWN INDICATION
     Route: 042
     Dates: start: 20121224, end: 20121224

REACTIONS (2)
  - Pneumonia [Fatal]
  - Febrile neutropenia [Recovered/Resolved with Sequelae]
